FAERS Safety Report 4342167-X (Version None)
Quarter: 2004Q1

REPORT INFORMATION
  Report Type: 
  Country: None (occurrence: None)
  Receive Date: 20040329
  Receipt Date: 20031218
  Transmission Date: 20041129
  Serious: No
  Sender: FDA-Public Use
  Company Number: USA031255027

PATIENT
  Age: 14 Year
  Sex: Male
  Weight: 28 kg

DRUGS (3)
  1. STRATTERA [Suspect]
     Indication: ATTENTION DEFICIT/HYPERACTIVITY DISORDER
     Dosage: 25 MG/DAY
     Dates: start: 20031215
  2. DEXEDRINE (DEXAMFETAMINE SULFATE) [Concomitant]
  3. ANTIBIOTIC [Concomitant]

REACTIONS (4)
  - DECREASED APPETITE [None]
  - RETCHING [None]
  - VOMITING [None]
  - WEIGHT INCREASED [None]
